FAERS Safety Report 9147000 (Version 1)
Quarter: 2013Q1

REPORT INFORMATION
  Report Type: Spontaneous
  Country: GR (occurrence: GR)
  Receive Date: 20130307
  Receipt Date: 20130307
  Transmission Date: 20140127
  Serious: Yes (Other)
  Sender: FDA-Public Use
  Company Number: GR-ROCHE-1198281

PATIENT
  Age: 75 Year
  Sex: Male

DRUGS (4)
  1. RITUXIMAB [Suspect]
     Indication: WALDENSTROM^S MACROGLOBULINAEMIA
     Route: 065
  2. RITUXIMAB [Suspect]
     Route: 065
  3. CYCLOPHOSPHAMIDE [Suspect]
     Indication: WALDENSTROM^S MACROGLOBULINAEMIA
     Dosage: 6 CYCYLES
     Route: 065
  4. DEXAMETHASONE [Suspect]
     Indication: WALDENSTROM^S MACROGLOBULINAEMIA
     Dosage: 6 CYCYLES
     Route: 065

REACTIONS (1)
  - Psoriasis [Recovered/Resolved]
